FAERS Safety Report 7520879-4 (Version None)
Quarter: 2011Q2

REPORT INFORMATION
  Report Type: 
  Country: None (occurrence: None)
  Receive Date: 20110603
  Receipt Date: 20101117
  Transmission Date: 20111010
  Serious: Yes (Hospitalization, Other)
  Sender: FDA-Public Use
  Company Number: US-BAYER-201016618NA

PATIENT
  Age: 27 Year
  Sex: Female
  Weight: 63.636 kg

DRUGS (6)
  1. GEODON [Concomitant]
     Indication: PRODUCT USED FOR UNKNOWN INDICATION
     Dates: start: 20040101
  2. COLACE [Concomitant]
     Indication: CONSTIPATION
  3. YAZ [Suspect]
     Indication: PRODUCT USED FOR UNKNOWN INDICATION
     Dosage: UNK
     Route: 048
     Dates: start: 20080101, end: 20080414
  4. LUNESTA [Concomitant]
     Dates: start: 20030101, end: 20090615
  5. OMEPRAZOLE [Concomitant]
     Indication: GASTROOESOPHAGEAL REFLUX DISEASE
  6. PROZAC [Concomitant]
     Dates: start: 20030101, end: 20070615

REACTIONS (8)
  - VITAMIN B12 DEFICIENCY [None]
  - ABDOMINAL PAIN UPPER [None]
  - VOMITING [None]
  - CHOLECYSTITIS CHRONIC [None]
  - NAUSEA [None]
  - PRIMARY IMMUNODEFICIENCY SYNDROME [None]
  - ABDOMINAL PAIN [None]
  - PAIN IN EXTREMITY [None]
